FAERS Safety Report 14421149 (Version 2)
Quarter: 2018Q2

REPORT INFORMATION
  Report Type: Not Available
  Country: US (occurrence: US)
  Receive Date: 20180122
  Receipt Date: 20180608
  Transmission Date: 20180711
  Serious: No
  Sender: FDA-Public Use
  Company Number: US-NEUROCRINE BIOSCIENCES INC.-2018NBI00041

PATIENT
  Sex: Female

DRUGS (3)
  1. INGREZZA [Suspect]
     Active Substance: VALBENAZINE
     Indication: DYSKINESIA
     Route: 048
     Dates: start: 20180411, end: 20180516
  2. CLOZAPINE. [Concomitant]
     Active Substance: CLOZAPINE
  3. FLUVOXAMINE [Concomitant]
     Active Substance: FLUVOXAMINE

REACTIONS (6)
  - Drug intolerance [Unknown]
  - Fatigue [Unknown]
  - Lethargy [Unknown]
  - Depressed level of consciousness [Unknown]
  - Somnolence [Unknown]
  - Drooling [Unknown]

NARRATIVE: CASE EVENT DATE: 2018
